FAERS Safety Report 8104806-7 (Version None)
Quarter: 2012Q1

REPORT INFORMATION
  Report Type: 
  Country: None (occurrence: None)
  Receive Date: 20120201
  Receipt Date: 20120126
  Transmission Date: 20120608
  Serious: Yes (Death, Hospitalization)
  Sender: FDA-Public Use
  Company Number: JP-CELGENEUS-087-50794-12013225

PATIENT
  Sex: Male
  Weight: 60 kg

DRUGS (4)
  1. NOVAMIN [Concomitant]
     Route: 065
     Dates: start: 20110912, end: 20110913
  2. VIDAZA [Suspect]
     Indication: MYELODYSPLASTIC SYNDROME
     Dosage: 100 MILLIGRAM
     Route: 041
     Dates: start: 20110912, end: 20110916
  3. VIDAZA [Suspect]
     Dosage: 100 MILLIGRAM
     Route: 041
     Dates: start: 20111011, end: 20111014
  4. KYTRIL [Concomitant]
     Route: 065
     Dates: start: 20110914, end: 20111121

REACTIONS (2)
  - FEBRILE NEUTROPENIA [None]
  - PNEUMONIA [None]
